FAERS Safety Report 5155311-1 (Version None)
Quarter: 2006Q4

REPORT INFORMATION
  Report Type: 
  Country: None (occurrence: None)
  Receive Date: 20061121
  Receipt Date: 20061110
  Transmission Date: 20070319
  Serious: Yes (Hospitalization)
  Sender: FDA-Public Use
  Company Number: 2006PK02349

PATIENT
  Age: 51 Year
  Sex: Male
  Weight: 66 kg

DRUGS (9)
  1. BELOC ZOK [Suspect]
     Indication: CORONARY ARTERY ANEURYSM
     Route: 048
     Dates: start: 20060506, end: 20060517
  2. ISOPTIN [Interacting]
     Indication: CLUSTER HEADACHE
     Route: 048
     Dates: start: 20060516, end: 20060517
  3. LISITRIL [Concomitant]
     Indication: SECONDARY HYPERTENSION
     Route: 048
     Dates: end: 20060517
  4. PLAVIX [Concomitant]
     Route: 048
  5. SIMCORA [Concomitant]
     Indication: HYPERCHOLESTEROLAEMIA
  6. PRIADEL [Concomitant]
  7. VALPROATE SODIUM [Concomitant]
  8. NICORETTE [Concomitant]
  9. IMIGRAN [Concomitant]

REACTIONS (5)
  - BRADYCARDIA [None]
  - DRUG INTERACTION [None]
  - HYPERKALAEMIA [None]
  - HYPOTENSION [None]
  - RENAL FAILURE ACUTE [None]
